FAERS Safety Report 9798924 (Version 2)
Quarter: 2014Q1

REPORT INFORMATION
  Report Type: Spontaneous
  Country: US (occurrence: US)
  Receive Date: 20140106
  Receipt Date: 20140106
  Transmission Date: 20141002
  Serious: No
  Sender: FDA-Public Use
  Company Number: US-GILEAD-2010-0033449

PATIENT
  Sex: Female

DRUGS (14)
  1. LETAIRIS [Suspect]
     Indication: PULMONARY ARTERIAL HYPERTENSION
     Route: 048
     Dates: start: 20090422
  2. BYSTOLIC [Concomitant]
  3. LISINOPRIL [Concomitant]
  4. ASPIRIN [Concomitant]
  5. COUMADIN [Concomitant]
  6. LASIX [Concomitant]
  7. WELCHOL [Concomitant]
  8. NEXIUM [Concomitant]
  9. TRAMADOL [Concomitant]
  10. CLONAZEPAM [Concomitant]
  11. SYNTHROID [Concomitant]
  12. POTASSIUM [Concomitant]
  13. CITRICAL [Concomitant]
  14. FISH OIL [Concomitant]

REACTIONS (1)
  - Swelling [Unknown]
